FAERS Safety Report 11121313 (Version 1)
Quarter: 2015Q2

REPORT INFORMATION
  Report Type: Spontaneous
  Country: FR (occurrence: None)
  Receive Date: 20150515
  Receipt Date: 20150515
  Transmission Date: 20150821
  Serious: Yes (Death)
  Sender: FDA-Public Use
  Company Number: 2015SEB00034

PATIENT
  Age: 57 Year
  Sex: Male

DRUGS (4)
  1. CEFTRIAZONE (CEFTRIAXONE) [Concomitant]
  2. HYDROCORTISONE. [Suspect]
     Active Substance: HYDROCORTISONE
     Indication: SEPTIC SHOCK
  3. METRONIDAZOLE (METRONIDAZOLE) [Concomitant]
     Active Substance: METRONIDAZOLE
  4. NOREPINEPHRINE (NOREPINEPHRINE) [Concomitant]

REACTIONS (9)
  - Strongyloidiasis [None]
  - Cardiac arrest [None]
  - Enterococcus test positive [None]
  - Pneumonia [None]
  - Atelectasis [None]
  - Loss of consciousness [None]
  - Encephalopathy [None]
  - Bacterial infection [None]
  - General physical health deterioration [None]
